FAERS Safety Report 24050429 (Version 2)
Quarter: 2024Q3

REPORT INFORMATION
  Report Type: Spontaneous
  Country: US (occurrence: US)
  Receive Date: 20240704
  Receipt Date: 20240725
  Transmission Date: 20241017
  Serious: No
  Sender: CALLIDITAS THERAPEUTICS
  Company Number: US-Calliditas-2024CAL01171

PATIENT
  Age: 53 Year
  Sex: Male

DRUGS (12)
  1. TARPEYO [Suspect]
     Active Substance: BUDESONIDE
     Indication: IgA nephropathy
     Route: 048
     Dates: start: 20240307
  2. ALLOPURINOL [Concomitant]
     Active Substance: ALLOPURINOL
  3. LIPITOR [Concomitant]
     Active Substance: ATORVASTATIN CALCIUM
  4. VITAMIN D3 [Concomitant]
     Active Substance: CHOLECALCIFEROL
  5. JARDIANCE [Concomitant]
     Active Substance: EMPAGLIFLOZIN
  6. PLENDIL [Concomitant]
     Active Substance: FELODIPINE
  7. KERENDIA [Concomitant]
     Active Substance: FINERENONE
  8. COZAAR [Concomitant]
     Active Substance: LOSARTAN POTASSIUM
  9. METOPROLOL [Concomitant]
     Active Substance: METOPROLOL
  10. LOVAZA [Concomitant]
     Active Substance: OMEGA-3-ACID ETHYL ESTERS
  11. ZOLOFT [Concomitant]
     Active Substance: SERTRALINE HYDROCHLORIDE
  12. TESTOSTERONE [Concomitant]
     Active Substance: TESTOSTERONE

REACTIONS (1)
  - Product residue present [Not Recovered/Not Resolved]

NARRATIVE: CASE EVENT DATE: 20240530
